FAERS Safety Report 19428307 (Version 1)
Quarter: 2021Q2

REPORT INFORMATION
  Report Type: Spontaneous
  Country: US (occurrence: US)
  Receive Date: 20210617
  Receipt Date: 20210617
  Transmission Date: 20210717
  Serious: Yes (Life-Threatening, Hospitalization, Other)
  Sender: FDA-Public Use
  Company Number: US-GLENMARK PHARMACEUTICALS-2021GMK054442

PATIENT
  Age: 21 Month
  Sex: Male
  Weight: 10 kg

DRUGS (1)
  1. ONDANSETRON [Suspect]
     Active Substance: ONDANSETRON
     Indication: PRODUCT USED FOR UNKNOWN INDICATION
     Dosage: 20 DOSAGE FORM, IN TOTAL
     Route: 048

REACTIONS (9)
  - Ataxia [Recovered/Resolved]
  - Accidental exposure to product [Unknown]
  - Electrocardiogram QT prolonged [Recovered/Resolved]
  - Drug level increased [Recovered/Resolved]
  - Mental status changes [Recovered/Resolved]
  - Heart rate increased [Recovered/Resolved]
  - Vomiting [Recovered/Resolved]
  - Lethargy [Recovered/Resolved]
  - Accidental overdose [Unknown]
